FAERS Safety Report 4514782-1 (Version None)
Quarter: 2004Q4

REPORT INFORMATION
  Report Type: 
  Country: None (occurrence: None)
  Receive Date: 20041124
  Receipt Date: 20041124
  Transmission Date: 20050328
  Serious: Yes (Hospitalization)
  Sender: FDA-Public Use
  Company Number: None

PATIENT
  Age: 70 Year
  Sex: Female

DRUGS (6)
  1. ADVAIR DISKUS 100/50 [Suspect]
     Indication: CHRONIC OBSTRUCTIVE AIRWAYS DISEASE
     Dosage: 1 PUFF  BID  RESPIRATOR
     Route: 055
  2. MONTELUKAST [Concomitant]
  3. THEOPHYLLINE [Concomitant]
  4. ALBUTEROL [Concomitant]
  5. NAPROXEN [Concomitant]
  6. ATORVASTATIN [Concomitant]

REACTIONS (4)
  - ASTHENIA [None]
  - FALL [None]
  - FATIGUE [None]
  - MYOPATHY STEROID [None]
